FAERS Safety Report 7628342-7 (Version None)
Quarter: 2011Q3

REPORT INFORMATION
  Report Type: 
  Country: None (occurrence: None)
  Receive Date: 20110714
  Receipt Date: 20110628
  Transmission Date: 20111222
  Serious: Yes (Hospitalization, Other)
  Sender: FDA-Public Use
  Company Number: 2011AP000494

PATIENT
  Age: 50 Year
  Sex: Female

DRUGS (4)
  1. AMISULPRIDE (AMISULPRIDE) [Suspect]
     Indication: SCHIZOPHRENIA
     Dosage: 200 MG, PO BID
     Route: 048
  2. REBOXETINE [Concomitant]
  3. CLARITHROMYCIN [Suspect]
     Indication: LOWER RESPIRATORY TRACT INFECTION
     Dosage: 500 MG, BID
     Dates: end: 20110113
  4. CLOZARIL [Suspect]
     Indication: SCHIZOPHRENIA
     Dosage: 50, 300 MG, PO PM
     Route: 048
     Dates: start: 19970402

REACTIONS (8)
  - HEART RATE INCREASED [None]
  - LOWER RESPIRATORY TRACT INFECTION [None]
  - BLOOD PRESSURE INCREASED [None]
  - DYSPNOEA [None]
  - CONFUSIONAL STATE [None]
  - OXYGEN SATURATION DECREASED [None]
  - H1N1 INFLUENZA [None]
  - DRUG INTERACTION [None]
